FAERS Safety Report 9071068 (Version 1)
Quarter: 2013Q1

REPORT INFORMATION
  Report Type: Report from Study
  Country: US (occurrence: US)
  Receive Date: 20130129
  Receipt Date: 20130129
  Transmission Date: 20140127
  Serious: No
  Sender: FDA-Public Use
  Company Number: US-ABBOTT-12P-163-0930035-00

PATIENT
  Sex: Male

DRUGS (4)
  1. HUMIRA 40 MG/0.8 ML PEN [Suspect]
     Indication: COLITIS ULCERATIVE
     Dosage: WEEK 0; FOUR PENS
     Route: 058
     Dates: start: 201203
  2. HUMIRA 40 MG/0.8 ML PEN [Suspect]
     Dosage: TWO WEEKS LATER; TWO PENS
     Route: 058
  3. HUMIRA 40 MG/0.8 ML PEN [Suspect]
     Dosage: ONE PEN EVERY OTHER WEEK
     Route: 058
  4. PREDNISONE [Concomitant]
     Indication: PRODUCT USED FOR UNKNOWN INDICATION

REACTIONS (2)
  - Injection site rash [Unknown]
  - Injection site pruritus [Unknown]
